FAERS Safety Report 5940950-8 (Version None)
Quarter: 2008Q4

REPORT INFORMATION
  Report Type: 
  Country: None (occurrence: None)
  Receive Date: 20081104
  Receipt Date: 20081027
  Transmission Date: 20090506
  Serious: Yes (Hospitalization)
  Sender: FDA-Public Use
  Company Number: US-ELI_LILLY_AND_COMPANY-US200809002668

PATIENT
  Sex: Female
  Weight: 56.689 kg

DRUGS (5)
  1. BYETTA [Suspect]
     Indication: GLUCOSE TOLERANCE IMPAIRED
     Dosage: 5 UG, 2/D
     Route: 058
     Dates: start: 20040101, end: 20080909
  2. COENZYME Q10 [Concomitant]
     Dosage: 100 MG, UNKNOWN
  3. FISH OIL [Concomitant]
     Dosage: 1 G, DAILY (1/D)
  4. VITAMIN D [Concomitant]
     Dosage: 1000 MG, UNKNOWN
  5. IMITREX [Concomitant]
     Indication: MIGRAINE
     Dosage: UNK, AS NEEDED

REACTIONS (2)
  - CEREBELLAR HAEMORRHAGE [None]
  - METABOLIC SYNDROME [None]
